FAERS Safety Report 25467169 (Version 1)
Quarter: 2025Q2

REPORT INFORMATION
  Report Type: Spontaneous
  Country: PL (occurrence: PL)
  Receive Date: 20250623
  Receipt Date: 20250623
  Transmission Date: 20250717
  Serious: Yes (Other)
  Sender: NOVARTIS
  Company Number: PL-002147023-NVSC2025PL093907

PATIENT
  Age: 45 Year
  Sex: Female

DRUGS (2)
  1. KISQALI [Suspect]
     Active Substance: RIBOCICLIB SUCCINATE
     Indication: Breast cancer
     Dosage: 400 MG, QD (21DAYS IN CYCLE OF 28 DAYS)
     Route: 065
     Dates: start: 20240212
  2. LETROZOLE [Suspect]
     Active Substance: LETROZOLE
     Indication: Breast cancer
     Route: 065
     Dates: start: 20240212

REACTIONS (6)
  - Neutropenia [Unknown]
  - Dyspepsia [Unknown]
  - White blood cell count abnormal [Unknown]
  - Alanine aminotransferase abnormal [Unknown]
  - Joint stiffness [Unknown]
  - Off label use [Unknown]
